FAERS Safety Report 6556788-7 (Version None)
Quarter: 2010Q1

REPORT INFORMATION
  Report Type: 
  Country: None (occurrence: None)
  Receive Date: 20100128
  Receipt Date: 20100114
  Transmission Date: 20100710
  Serious: Yes (Other)
  Sender: FDA-Public Use
  Company Number: PHEH2008US05797

PATIENT
  Sex: Male

DRUGS (22)
  1. ZELNORM [Suspect]
     Indication: ABDOMINAL DISCOMFORT
     Dosage: 6 MG 1/2 TAB 2 TIMES DAILY
     Route: 048
     Dates: start: 20060814, end: 20070101
  2. PROTONIX [Concomitant]
     Dosage: 10 MG BY MOUTH DAILY
  3. TRAZODONE HYDROCHLORIDE [Concomitant]
     Dosage: 50 MG TABLETS 2 TIMES DAILY
  4. FOLTX [Concomitant]
     Dosage: 1 TAB BY MOUTH DAILY
  5. COZAAR [Concomitant]
     Dosage: 100 MG BY MOUTH DAILY
  6. LASIX [Concomitant]
     Dosage: 40 MG BY MOUTH DAILY
  7. DELATESTRYL [Concomitant]
     Dosage: 200 MG/ML IM EVERY 2 WEEKS
  8. LIPITOR [Concomitant]
     Dosage: 40 MG BY MOUTH DAILY
  9. NITROGLYCERIN [Concomitant]
     Dosage: 0.4 MG SL 1 EVERY 5 MINUTES X 3
  10. INSULIN [Concomitant]
     Dosage: SLIDING SCALE
  11. PLAVIX [Concomitant]
     Dosage: 75 MG DAILY
  12. METFORMIN [Concomitant]
     Dosage: UNK
  13. DILTIAZEM [Concomitant]
     Dosage: UNK
  14. ACTOS [Concomitant]
     Dosage: UNK
  15. ATENOLOL [Concomitant]
     Dosage: UNK
  16. GLIPIZIDE [Concomitant]
     Dosage: UNK
  17. VICODIN [Concomitant]
     Dosage: 7.5 BY MOUTH AS NEEDED
  18. BENADRYL [Concomitant]
     Dosage: 25 MG AS NEEDED
  19. CLARITIN-D [Concomitant]
     Dosage: 10 MG BY MOUTH AS NEEDED
  20. LANTUS [Concomitant]
     Dosage: 25 UNITS EVERY MORNING
  21. LOPRESSOR HCT [Concomitant]
     Dosage: 100 MG BY MOUTH 2 TIMES DAILY
  22. TESTOSTERONE [Concomitant]

REACTIONS (6)
  - ANXIETY [None]
  - ARTERIOVENOUS MALFORMATION [None]
  - DISABILITY [None]
  - INJURY [None]
  - MYOCARDIAL INFARCTION [None]
  - PAIN [None]
